FAERS Safety Report 6134655-0 (Version None)
Quarter: 2009Q1

REPORT INFORMATION
  Report Type: 
  Country: None (occurrence: None)
  Receive Date: 20090327
  Receipt Date: 20090319
  Transmission Date: 20090719
  Serious: Yes (Other)
  Sender: FDA-Public Use
  Company Number: US-BIOGENIDEC-2008BI029534

PATIENT
  Age: 38 Year
  Sex: Female

DRUGS (2)
  1. TYSABRI [Suspect]
     Indication: MULTIPLE SCLEROSIS
     Route: 042
     Dates: start: 20080128
  2. INSULIN [Concomitant]
     Indication: BLOOD GLUCOSE INCREASED

REACTIONS (2)
  - MEMORY IMPAIRMENT [None]
  - VIRAL INFECTION [None]
